FAERS Safety Report 4668300-8 (Version None)
Quarter: 2005Q2

REPORT INFORMATION
  Report Type: 
  Country: None (occurrence: None)
  Receive Date: 20050523
  Receipt Date: 20050304
  Transmission Date: 20051028
  Serious: Yes (Other)
  Sender: FDA-Public Use
  Company Number: PHEH2005US02743

PATIENT
  Age: 71 Year
  Sex: Female

DRUGS (13)
  1. ZOMETA [Suspect]
     Indication: BREAST CANCER METASTATIC
     Dosage: 4 MG, QMO
     Dates: start: 20030406, end: 20040913
  2. ARIMIDEX [Concomitant]
  3. CARBOPLATIN [Concomitant]
  4. TAXOL [Concomitant]
  5. HERCEPTIN [Concomitant]
  6. TAMOXIFEN [Concomitant]
  7. PAXIL [Concomitant]
  8. ZOCOR [Concomitant]
  9. SYNTHROID [Concomitant]
  10. LOVENOX [Concomitant]
  11. MULTI-VITAMINS [Concomitant]
  12. VITAMIN D [Concomitant]
  13. CALCIUM GLUCONATE [Concomitant]

REACTIONS (4)
  - DENTAL OPERATION [None]
  - OSTEONECROSIS [None]
  - TOOTH ABSCESS [None]
  - TOOTH EXTRACTION [None]
